FAERS Safety Report 6013713-5 (Version None)
Quarter: 2008Q4

REPORT INFORMATION
  Report Type: 
  Country: None (occurrence: None)
  Receive Date: 20081219
  Receipt Date: 20081218
  Transmission Date: 20090506
  Serious: Yes (Other)
  Sender: FDA-Public Use
  Company Number: A0760930A

PATIENT
  Age: 44 Year
  Sex: Male

DRUGS (6)
  1. WELLBUTRIN SR [Suspect]
     Indication: DEPRESSION
     Dosage: 1200MG VARIABLE DOSE
     Route: 048
     Dates: start: 20050101, end: 20081017
  2. PAXIL [Suspect]
     Indication: DEPRESSION
     Dosage: 40MG PER DAY
     Route: 048
     Dates: start: 20050101, end: 20081015
  3. SINGULAIR [Concomitant]
  4. VENTOLIN [Concomitant]
  5. FLOVENT [Concomitant]
  6. KEPPRA [Concomitant]

REACTIONS (5)
  - CONVULSION [None]
  - OVERDOSE [None]
  - TREMOR [None]
  - WEIGHT DECREASED [None]
  - WITHDRAWAL SYNDROME [None]
